FAERS Safety Report 12738477 (Version 7)
Quarter: 2017Q4

REPORT INFORMATION
  Report Type: Spontaneous
  Country: US (occurrence: US)
  Receive Date: 20160913
  Receipt Date: 20171013
  Transmission Date: 20180320
  Serious: No
  Sender: FDA-Public Use
  Company Number: US-ACTELION-A-NJ2016-132776

PATIENT
  Age: 72 Year
  Sex: Male
  Weight: 81.63 kg

DRUGS (6)
  1. UMECLIDINIUM [Concomitant]
     Active Substance: UMECLIDINIUM BROMIDE
  2. VELETRI [Suspect]
     Active Substance: EPOPROSTENOL
     Dosage: 25 NG/KG, PER MIN
     Route: 042
  3. VELETRI [Suspect]
     Active Substance: EPOPROSTENOL
     Dosage: 22 NG/KG, PER MIN
     Route: 042
     Dates: start: 20150203
  4. OPSUMIT [Suspect]
     Active Substance: MACITENTAN
     Indication: PULMONARY ARTERIAL HYPERTENSION
     Route: 048
  5. REVATIO [Concomitant]
     Active Substance: SILDENAFIL CITRATE
  6. VELETRI [Suspect]
     Active Substance: EPOPROSTENOL
     Indication: PULMONARY ARTERIAL HYPERTENSION
     Dosage: 29 NG/KG, PER MIN
     Route: 042

REACTIONS (18)
  - Nasal congestion [Unknown]
  - Arthritis [Unknown]
  - Sinus disorder [Unknown]
  - Rhinorrhoea [Unknown]
  - Oxygen saturation decreased [Unknown]
  - Hypersensitivity [Unknown]
  - Epistaxis [Unknown]
  - Dyspnoea [Unknown]
  - Heart rate increased [Unknown]
  - Hypoxia [Unknown]
  - Bronchitis [Unknown]
  - Pyrexia [Unknown]
  - Nausea [Unknown]
  - Pain [Unknown]
  - Dyspnoea exertional [Recovering/Resolving]
  - Muscle atrophy [Recovering/Resolving]
  - Vomiting [Unknown]
  - Myalgia [Unknown]

NARRATIVE: CASE EVENT DATE: 20161020
